FAERS Safety Report 5405264-3 (Version None)
Quarter: 2007Q3

REPORT INFORMATION
  Report Type: 
  Country: None (occurrence: None)
  Receive Date: 20070803
  Receipt Date: 20070730
  Transmission Date: 20080115
  Serious: Yes (Hospitalization)
  Sender: FDA-Public Use
  Company Number: A0653958B

PATIENT
  Sex: Female
  Weight: 3 kg

DRUGS (5)
  1. LAMOTRIGINE [Suspect]
     Indication: BIPOLAR DISORDER
  2. LITHIUM CARBONATE [Concomitant]
     Dosage: 1350MG PER DAY
  3. TOPAMAX [Concomitant]
     Dosage: 300MG PER DAY
  4. ABILIFY [Concomitant]
     Dosage: 5MG PER DAY
  5. LORAZEPAM [Concomitant]
     Dosage: 2MG PER DAY

REACTIONS (7)
  - APNOEA [None]
  - CYANOSIS [None]
  - DRUG EXPOSURE DURING PREGNANCY [None]
  - INFANTILE APNOEIC ATTACK [None]
  - NEONATAL DISORDER [None]
  - POLYCYTHAEMIA [None]
  - PREMATURE BABY [None]
